FAERS Safety Report 9365045 (Version 2)
Quarter: 2013Q2

REPORT INFORMATION
  Report Type: Spontaneous
  Country: GB (occurrence: GB)
  Receive Date: 20130624
  Receipt Date: 20130626
  Transmission Date: 20140414
  Serious: Yes (Hospitalization, Other)
  Sender: FDA-Public Use
  Company Number: GB-ABBOTT-13P-167-1107306-00

PATIENT
  Age: 30 Year
  Sex: Female

DRUGS (4)
  1. HUMIRA [Suspect]
     Indication: CROHN^S DISEASE
     Dosage: 3 INDUCTION DOSES
     Dates: start: 201009, end: 201010
  2. HUMIRA [Suspect]
     Dosage: 160/80
     Dates: start: 201010, end: 201012
  3. HUMIRA [Suspect]
     Dates: start: 201012, end: 201102
  4. HUMIRA [Suspect]
     Dosage: 160/80 THEN EOW
     Dates: start: 201104

REACTIONS (11)
  - Pelvic cyst [Unknown]
  - Drug ineffective [Unknown]
  - Drug effect decreased [Unknown]
  - Intestinal obstruction [Unknown]
  - Pelvic inflammatory disease [Unknown]
  - Alopecia [Unknown]
  - Gastrointestinal disorder [Unknown]
  - Dermatitis [Unknown]
  - Pain [Unknown]
  - Abdominal distension [Unknown]
  - Pseudocyst [Unknown]
